FAERS Safety Report 4912410-4 (Version None)
Quarter: 2006Q1

REPORT INFORMATION
  Report Type: 
  Country: None (occurrence: None)
  Receive Date: 20060215
  Receipt Date: 20050303
  Transmission Date: 20060701
  Serious: Yes (Hospitalization, Disabling)
  Sender: FDA-Public Use
  Company Number: US-GLAXOSMITHKLINE-A0548227A

PATIENT
  Age: 33 Year
  Sex: Male
  Weight: 76 kg

DRUGS (9)
  1. VALTREX [Suspect]
     Route: 048
     Dates: start: 20050218, end: 20050221
  2. COREG [Concomitant]
     Indication: HYPERTENSION
     Dosage: 12.5MG TWICE PER DAY
     Route: 048
  3. PROCRIT [Concomitant]
     Dosage: 1.5MG TWICE PER DAY
  4. PREDNISONE [Concomitant]
     Dosage: 10MG PER DAY
     Route: 048
  5. PREVACID [Concomitant]
     Indication: GASTRITIS
     Dosage: 30MG PER DAY
     Route: 048
  6. LIPITOR [Concomitant]
     Indication: BLOOD CHOLESTEROL INCREASED
     Dosage: 10MG PER DAY
     Route: 048
  7. FLOMAX [Concomitant]
     Dosage: .4MG PER DAY
  8. ASPIRIN [Concomitant]
     Dosage: 81MG PER DAY
     Route: 048
  9. CELLCEPT [Concomitant]
     Dosage: 1000MG TWICE PER DAY
     Route: 048

REACTIONS (2)
  - ENCEPHALOPATHY [None]
  - MENTAL STATUS CHANGES [None]
